FAERS Safety Report 16890508 (Version 1)
Quarter: 2019Q4

REPORT INFORMATION
  Report Type: Spontaneous
  Country: FR (occurrence: FR)
  Receive Date: 20191007
  Receipt Date: 20191007
  Transmission Date: 20200122
  Serious: Yes (Other)
  Sender: FDA-Public Use
  Company Number: FR-MYLANLABS-09P-056-0791206-00

PATIENT
  Age: 24 Year
  Sex: Female

DRUGS (2)
  1. LUTENYL [Suspect]
     Active Substance: NOMEGESTROL ACETATE
     Indication: ORAL CONTRACEPTION
     Dosage: DAILY DOSE:  UNKNOWN
     Route: 048
     Dates: start: 200810, end: 20090328
  2. OROMONE [Suspect]
     Active Substance: ESTRADIOL
     Indication: ORAL CONTRACEPTION
     Dosage: DAILY DOSE:  UNKNOWN
     Route: 048
     Dates: start: 200810, end: 20090328

REACTIONS (2)
  - Pregnancy on contraceptive [Not Recovered/Not Resolved]
  - Off label use [Unknown]

NARRATIVE: CASE EVENT DATE: 200810
